FAERS Safety Report 6647678-X (Version None)
Quarter: 2010Q1

REPORT INFORMATION
  Report Type: 
  Country: None (occurrence: None)
  Receive Date: 20100323
  Receipt Date: 20100323
  Transmission Date: 20100710
  Serious: No
  Sender: FDA-Public Use
  Company Number: None

PATIENT
  Age: 86 Year
  Sex: Female
  Weight: 58.9676 kg

DRUGS (1)
  1. EVISTA [Suspect]
     Dosage: 1-A DAY

REACTIONS (2)
  - MUSCLE SPASMS [None]
  - THROMBOSIS [None]
